FAERS Safety Report 5765885-5 (Version None)
Quarter: 2008Q2

REPORT INFORMATION
  Report Type: 
  Country: None (occurrence: None)
  Receive Date: 20080611
  Receipt Date: 20080530
  Transmission Date: 20081010
  Serious: Yes (Hospitalization)
  Sender: FDA-Public Use
  Company Number: AU-PFIZER INC-2008029735

PATIENT
  Sex: Female

DRUGS (4)
  1. CHANTIX [Suspect]
     Route: 048
  2. ALCOHOL [Suspect]
  3. FOSAMAX [Concomitant]
     Route: 048
  4. MONOPLUS [Concomitant]
     Dosage: TEXT:20/12.5

REACTIONS (2)
  - AMNESIA [None]
  - CONFUSIONAL STATE [None]
